FAERS Safety Report 5814837-5 (Version None)
Quarter: 2008Q3

REPORT INFORMATION
  Report Type: 
  Country: None (occurrence: None)
  Receive Date: 20080718
  Receipt Date: 20080326
  Transmission Date: 20090109
  Serious: Yes (Hospitalization)
  Sender: FDA-Public Use
  Company Number: FR-NOVOPROD-277495

PATIENT
  Age: 35 Year
  Sex: Female

DRUGS (2)
  1. NOVORAPID [Suspect]
     Indication: DIABETES MELLITUS
     Route: 058
  2. NOVORAPID [Suspect]
     Route: 058
     Dates: start: 20080208

REACTIONS (4)
  - CHOLESTASIS [None]
  - CYTOLYTIC HEPATITIS [None]
  - PREGNANCY [None]
  - PRURITUS [None]
